FAERS Safety Report 4507506-5 (Version None)
Quarter: 2004Q4

REPORT INFORMATION
  Report Type: 
  Country: None (occurrence: None)
  Receive Date: 20041123
  Receipt Date: 20041112
  Transmission Date: 20050328
  Serious: Yes (Other)
  Sender: FDA-Public Use
  Company Number: US-JNJFOC-20041103690

PATIENT
  Sex: Female
  Weight: 70.31 kg

DRUGS (20)
  1. INFLIXIMAB [Suspect]
     Route: 042
  2. INFLIXIMAB [Suspect]
     Indication: RHEUMATOID ARTHRITIS
     Route: 042
  3. MICRO-K [Concomitant]
  4. ENDURON [Concomitant]
  5. PREDNISONE [Concomitant]
  6. LEXAPRO [Concomitant]
  7. LEVOXYL [Concomitant]
  8. FOSAMAX [Concomitant]
  9. MULTIVITAMIN [Concomitant]
  10. MULTIVITAMIN [Concomitant]
  11. MULTIVITAMIN [Concomitant]
  12. MULTIVITAMIN [Concomitant]
  13. MULTIVITAMIN [Concomitant]
  14. MULTIVITAMIN [Concomitant]
  15. MULTIVITAMIN [Concomitant]
  16. MULTIVITAMIN [Concomitant]
  17. CALCIUM D [Concomitant]
  18. CALCIUM D [Concomitant]
  19. CALCIUM D [Concomitant]
  20. GINKOBA [Concomitant]

REACTIONS (1)
  - SQUAMOUS CELL CARCINOMA OF SKIN [None]
